FAERS Safety Report 7347751-7 (Version None)
Quarter: 2011Q1

REPORT INFORMATION
  Report Type: 
  Country: None (occurrence: None)
  Receive Date: 20110311
  Receipt Date: 20110225
  Transmission Date: 20110831
  Serious: Yes (Hospitalization)
  Sender: FDA-Public Use
  Company Number: DE-AMGEN-US387236

PATIENT
  Age: 20 Year
  Sex: Female
  Weight: 60 kg

DRUGS (4)
  1. REMICADE [Suspect]
     Dosage: UNK UNK, UNK
     Route: 042
     Dates: start: 20090501, end: 20090901
  2. LANTAREL [Suspect]
     Dosage: UNK UNK, UNK
     Route: 065
     Dates: start: 20090401
  3. LANTAREL [Suspect]
     Indication: JUVENILE ARTHRITIS
     Dosage: UNK UNK, UNK
     Route: 065
     Dates: start: 20060301, end: 20070201
  4. ENBREL [Suspect]
     Indication: JUVENILE ARTHRITIS
     Dosage: 25 MG, 2 TIMES/WK
     Route: 058
     Dates: start: 20070115, end: 20080421

REACTIONS (1)
  - CERVICAL DYSPLASIA [None]
